FAERS Safety Report 9366998 (Version 1)
Quarter: 2013Q2

REPORT INFORMATION
  Report Type: Report from Study
  Country: IT (occurrence: IT)
  Receive Date: 20130625
  Receipt Date: 20130625
  Transmission Date: 20140414
  Serious: Yes (Other)
  Sender: FDA-Public Use
  Company Number: PHHY2013IT064063

PATIENT
  Sex: Male

DRUGS (2)
  1. EXJADE [Suspect]
     Dosage: 10 MG, UNK
  2. EXJADE [Suspect]
     Dosage: 20 MG, UNK

REACTIONS (2)
  - Cardiac failure [Unknown]
  - Cardiac siderosis [Unknown]
